FAERS Safety Report 7270043-1 (Version None)
Quarter: 2011Q1

REPORT INFORMATION
  Report Type: 
  Country: None (occurrence: None)
  Receive Date: 20110202
  Receipt Date: 20110126
  Transmission Date: 20110831
  Serious: Yes (Other)
  Sender: FDA-Public Use
  Company Number: US-PFIZER INC-2010140623

PATIENT
  Sex: Male
  Weight: 81.633 kg

DRUGS (6)
  1. DOXAZOSIN [Concomitant]
     Dosage: UNK
  2. TAMSULOSIN [Concomitant]
     Dosage: 0.4 MG, UNK
  3. SUTENT [Suspect]
     Indication: METASTATIC RENAL CELL CARCINOMA
     Dosage: 50 MG, 1X/DAY, FOR 28 DAYS EVERY 42 DAYS
     Route: 048
     Dates: start: 20101026, end: 20101112
  4. FINASTERIDE [Concomitant]
     Indication: PROSTATIC DISORDER
     Dosage: 5 MG, 1X/DAY
  5. ACETYLSALICYLIC ACID [Concomitant]
     Dosage: UNK
  6. METOPROLOL [Concomitant]
     Dosage: 25 MG, 2X/DAY

REACTIONS (11)
  - VOMITING [None]
  - PENILE HAEMORRHAGE [None]
  - FALL [None]
  - CHILLS [None]
  - DECREASED APPETITE [None]
  - HAEMORRHAGE [None]
  - CONSTIPATION [None]
  - BRAIN NEOPLASM [None]
  - PYREXIA [None]
  - BACK PAIN [None]
  - HYPERHIDROSIS [None]
